FAERS Safety Report 23271642 (Version 1)
Quarter: 2023Q4

REPORT INFORMATION
  Report Type: Spontaneous
  Country: JP (occurrence: JP)
  Receive Date: 20231207
  Receipt Date: 20231207
  Transmission Date: 20240109
  Serious: Yes (Hospitalization, Other)
  Sender: FDA-Public Use
  Company Number: JP-MSD-M2023-30733

PATIENT
  Age: 85 Year
  Sex: Female

DRUGS (6)
  1. KEYTRUDA [Suspect]
     Active Substance: PEMBROLIZUMAB
     Indication: Squamous cell carcinoma of the cervix
     Dosage: 200 MILLIGRAM, Q3W
     Route: 041
     Dates: end: 2023
  2. PACLITAXEL [Suspect]
     Active Substance: PACLITAXEL
     Dosage: 175 MILLIGRAM/SQ. METER, Q3W
     Route: 041
  3. PACLITAXEL [Suspect]
     Active Substance: PACLITAXEL
     Dosage: 158 MILLIGRAM/SQ. METER, Q3W
     Route: 041
     Dates: end: 2023
  4. BEVACIZUMAB [Suspect]
     Active Substance: BEVACIZUMAB
     Dosage: 15 MILLIGRAM/KILOGRAM, Q3W
     Route: 041
     Dates: end: 2023
  5. CARBOPLATIN [Concomitant]
     Active Substance: CARBOPLATIN
     Dosage: AUC 5, Q3W
     Route: 041
  6. CARBOPLATIN [Concomitant]
     Active Substance: CARBOPLATIN
     Dosage: AUC4, Q3W
     Route: 041
     Dates: end: 2023

REACTIONS (7)
  - Immune-mediated hypothyroidism [Recovering/Resolving]
  - Immune-mediated enterocolitis [Unknown]
  - Cystitis haemorrhagic [Unknown]
  - Pseudomembranous colitis [Unknown]
  - Hypoaesthesia [Unknown]
  - Thyroiditis [Unknown]
  - Neutrophil count decreased [Unknown]

NARRATIVE: CASE EVENT DATE: 20230701
